FAERS Safety Report 6596802-6 (Version None)
Quarter: 2010Q1

REPORT INFORMATION
  Report Type: 
  Country: None (occurrence: None)
  Receive Date: 20100212
  Receipt Date: 20100120
  Transmission Date: 20100710
  Serious: Yes (Disabling)
  Sender: FDA-Public Use
  Company Number: 2009009850

PATIENT
  Age: 59 Year
  Sex: Male
  Weight: 81.6475 kg

DRUGS (4)
  1. TREANDA [Suspect]
     Indication: CHRONIC LYMPHOCYTIC LEUKAEMIA
     Dosage: HAS RECEIVED 2 CYCLES THUS FAR), INTRAVENOUS
     Route: 042
     Dates: start: 20090706
  2. TREANDA [Suspect]
     Indication: NON-HODGKIN'S LYMPHOMA
     Dosage: HAS RECEIVED 2 CYCLES THUS FAR), INTRAVENOUS
     Route: 042
     Dates: start: 20090706
  3. RITUXAN [Concomitant]
  4. ALLOPURINOL [Concomitant]

REACTIONS (9)
  - ABDOMINAL DISCOMFORT [None]
  - DIZZINESS [None]
  - DYSPNOEA [None]
  - HEART RATE INCREASED [None]
  - HOT FLUSH [None]
  - HYPOPHAGIA [None]
  - MUSCLE SPASMS [None]
  - NAUSEA [None]
  - PHLEBITIS [None]
